FAERS Safety Report 7085157-9 (Version None)
Quarter: 2010Q4

REPORT INFORMATION
  Report Type: 
  Country: None (occurrence: None)
  Receive Date: 20101105
  Receipt Date: 20101025
  Transmission Date: 20110411
  Serious: Yes (Other)
  Sender: FDA-Public Use
  Company Number: US-JNJFOC-20101007076

PATIENT
  Sex: Female

DRUGS (7)
  1. REMICADE [Suspect]
     Indication: CROHN'S DISEASE
     Route: 042
  2. IMURAN [Concomitant]
     Indication: CROHN'S DISEASE
  3. CALCIUM [Concomitant]
     Indication: NEPHROPATHY
  4. SODIUM BICARBONATE [Concomitant]
     Indication: NEPHROPATHY
  5. POTASSIUM CHLORIDE [Concomitant]
     Indication: NEPHROPATHY
  6. MAGNESIUM [Concomitant]
     Indication: NEPHROPATHY
  7. VITAMIN B-12 [Concomitant]
     Route: 050

REACTIONS (2)
  - NEPHROLITHIASIS [None]
  - RENAL FAILURE CHRONIC [None]
